FAERS Safety Report 9788637 (Version 2)
Quarter: 2013Q4

REPORT INFORMATION
  Report Type: Spontaneous
  Country: JP (occurrence: JP)
  Receive Date: 20131230
  Receipt Date: 20131230
  Transmission Date: 20140711
  Serious: Yes (Hospitalization, Other)
  Sender: FDA-Public Use
  Company Number: JP-BAYER-2013-126867

PATIENT
  Age: 70 Year
  Sex: Male
  Weight: 64 kg

DRUGS (6)
  1. STIVARGA [Suspect]
     Indication: COLON CANCER
     Dosage: 160 MG, QD
     Route: 048
     Dates: start: 20131009, end: 20131014
  2. MAGMITT [Concomitant]
     Dosage: DAILY DOSE 750 MG
     Route: 048
     Dates: start: 20131011, end: 20131018
  3. CELECOXIB [Concomitant]
     Dosage: DAILY DOSE 100 MG
     Route: 048
     Dates: start: 20131011
  4. TERNELIN [Concomitant]
     Dosage: DAILY DOSE 1 MG
     Route: 048
     Dates: start: 20131011
  5. MUCOSTA [Concomitant]
     Dosage: DAILY DOSE 100 MG
     Route: 048
     Dates: start: 20131011
  6. LOXONIN [Concomitant]
     Dosage: UNK
     Route: 062
     Dates: start: 20131011

REACTIONS (4)
  - Platelet count decreased [Recovered/Resolved]
  - Sepsis [Recovered/Resolved]
  - Pyrexia [Recovered/Resolved]
  - C-reactive protein increased [Recovering/Resolving]
